FAERS Safety Report 7102782-7 (Version None)
Quarter: 2010Q4

REPORT INFORMATION
  Report Type: 
  Country: None (occurrence: None)
  Receive Date: 20101115
  Receipt Date: 20101101
  Transmission Date: 20110411
  Serious: Yes (Death, Other)
  Sender: FDA-Public Use
  Company Number: US-GENZYME-FLUD-1000332

PATIENT
  Age: 5 Year
  Sex: Male

DRUGS (11)
  1. FLUDARA [Suspect]
     Indication: BONE MARROW TRANSPLANT
     Dosage: 25 MG/M2 ON DAYS 5 TO 3 BEFORE TRANSPLANT
     Route: 042
  2. FLUDARA [Suspect]
     Indication: STEM CELL TRANSPLANT
  3. CYCLOPHOSPHAMIDE [Suspect]
     Indication: BONE MARROW TRANSPLANT
     Dosage: 50 MG/KG ON DAYS 5 TO 2 BEFORE TRANSPLANT
     Route: 042
  4. CYCLOPHOSPHAMIDE [Suspect]
     Indication: STEM CELL TRANSPLANT
  5. BUSULFAN [Suspect]
     Indication: BONE MARROW TRANSPLANT
     Dosage: Q6H ON DAYS 9 TO 6 BEFORE TRANSPLANT
     Route: 042
  6. BUSULFAN [Suspect]
     Indication: STEM CELL TRANSPLANT
  7. CYCLOSPORINE [Concomitant]
     Indication: PROPHYLAXIS AGAINST GRAFT VERSUS HOST DISEASE
     Dosage: GIVEN ON DAY 3 BEFORE TRANSPLANT TO DAY 100 AFTER TRANSPLANT; DOSE TAPERED 10% EACH WEEK
     Route: 065
  8. MYCOPHENOLATE MOFETIL [Concomitant]
     Indication: PROPHYLAXIS AGAINST GRAFT VERSUS HOST DISEASE
     Dosage: 15 MG/KG ON DAY 3 BEFORE TRANSPLANT TO DAY 45 AFTER TRANSPLANT
     Route: 065
  9. RITUXIMAB [Concomitant]
     Indication: BONE MARROW TRANSPLANT
     Dosage: 375 MG/M2, ONCE ON DAY 5 BEFORE SECOND STEM CELL TRANSPLANT
     Route: 042
  10. RITUXIMAB [Concomitant]
     Indication: STEM CELL TRANSPLANT
  11. ANTI-THYMOCYTE GLOBULIN NOS [Concomitant]
     Dosage: 15 MG/KG ON DAYS 4, 3, AND 2 BEFORE SECOND STEM CELL TRANSPLANT
     Route: 042

REACTIONS (10)
  - ACUTE RESPIRATORY DISTRESS SYNDROME [None]
  - ADENOVIRUS INFECTION [None]
  - BACTERIAL INFECTION [None]
  - BK VIRUS INFECTION [None]
  - CYSTITIS HAEMORRHAGIC [None]
  - EPSTEIN-BARR VIRUS INFECTION [None]
  - HUMAN HERPESVIRUS 6 INFECTION [None]
  - HYPERBILIRUBINAEMIA [None]
  - MUCOSAL INFLAMMATION [None]
  - TRANSPLANT REJECTION [None]
